FAERS Safety Report 14273754 (Version 1)
Quarter: 2017Q4

REPORT INFORMATION
  Report Type: Spontaneous
  Country: US (occurrence: US)
  Receive Date: 20171211
  Receipt Date: 20171211
  Transmission Date: 20180321
  Serious: Yes (Other)
  Sender: FDA-Public Use
  Company Number: US-OTSUKA-2016_018056

PATIENT
  Sex: Female
  Weight: 77.98 kg

DRUGS (1)
  1. ABILIFY [Suspect]
     Active Substance: ARIPIPRAZOLE
     Indication: BIPOLAR DISORDER
     Dosage: 5 OR 10 MG/DAY
     Route: 065
     Dates: start: 2002, end: 2009

REACTIONS (13)
  - Tumour excision [Unknown]
  - Off label use [Unknown]
  - Irritability [Recovered/Resolved]
  - Compulsive shopping [Recovered/Resolved]
  - Thyroid disorder [Unknown]
  - Hypersexuality [Recovered/Resolved]
  - Parathyroid tumour [Unknown]
  - Depression [Recovered/Resolved]
  - Constipation [Recovered/Resolved]
  - Weight increased [Unknown]
  - Gambling [Recovered/Resolved]
  - Feeling abnormal [Unknown]
  - Agitation [Recovered/Resolved]
